FAERS Safety Report 12434318 (Version 2)
Quarter: 2016Q4

REPORT INFORMATION
  Report Type: Spontaneous
  Country: FI (occurrence: FI)
  Receive Date: 20160603
  Receipt Date: 20161013
  Transmission Date: 20170207
  Serious: Yes (Other)
  Sender: FDA-Public Use
  Company Number: FI-BRISTOL-MYERS SQUIBB COMPANY-BMS-2016-042808

PATIENT
  Sex: Female

DRUGS (1)
  1. ABILIFY [Suspect]
     Active Substance: ARIPIPRAZOLE
     Indication: PRODUCT USED FOR UNKNOWN INDICATION
     Route: 065

REACTIONS (4)
  - Sudden onset of sleep [Unknown]
  - Decreased activity [Unknown]
  - Fatigue [Unknown]
  - Insomnia [Unknown]
